FAERS Safety Report 8621009-8 (Version None)
Quarter: 2012Q3

REPORT INFORMATION
  Report Type: 
  Country: None (occurrence: None)
  Receive Date: 20120824
  Receipt Date: 20120821
  Transmission Date: 20120928
  Serious: Yes (Death, Life-Threatening)
  Sender: FDA-Public Use
  Company Number: FR-SANOFI-AVENTIS-2012SA059993

PATIENT
  Sex: Female

DRUGS (13)
  1. ASPIRIN [Suspect]
     Route: 048
  2. LYRICA [Suspect]
     Route: 048
     Dates: end: 20120726
  3. NEXIUM [Suspect]
     Route: 048
  4. ZOMETA [Suspect]
     Route: 042
     Dates: start: 20120719, end: 20120719
  5. DURAGESIC-100 [Suspect]
     Route: 062
     Dates: end: 20120726
  6. ACETAMINOPHEN [Suspect]
     Route: 048
     Dates: end: 20120726
  7. BISOPROLOL FUMARATE [Suspect]
     Route: 048
     Dates: end: 20120727
  8. PLAVIX [Suspect]
     Route: 048
  9. CYMBALTA [Suspect]
     Route: 048
     Dates: end: 20120726
  10. RAMIPRIL [Suspect]
     Route: 048
     Dates: end: 20120726
  11. NITROGLYCERIN [Suspect]
     Route: 062
     Dates: end: 20120727
  12. LERCANIDIPINE [Suspect]
     Route: 048
     Dates: end: 20120726
  13. ATORVASTATIN [Suspect]
     Route: 048

REACTIONS (3)
  - RENAL FAILURE ACUTE [None]
  - CONFUSIONAL STATE [None]
  - AGITATION [None]
